FAERS Safety Report 5327704-0 (Version None)
Quarter: 2007Q2

REPORT INFORMATION
  Report Type: 
  Country: None (occurrence: None)
  Receive Date: 20070517
  Receipt Date: 20070514
  Transmission Date: 20071010
  Serious: Yes (Hospitalization, Disabling)
  Sender: FDA-Public Use
  Company Number: CM-MERCK-0705USA01130

PATIENT
  Age: 17 Year
  Sex: Female

DRUGS (1)
  1. MECTIZAN [Suspect]
     Route: 048
     Dates: start: 20070418

REACTIONS (6)
  - ALTERED STATE OF CONSCIOUSNESS [None]
  - ASTHENIA [None]
  - COMA [None]
  - CONJUNCTIVAL HAEMORRHAGE [None]
  - HEADACHE [None]
  - URINARY INCONTINENCE [None]
